FAERS Safety Report 10930653 (Version 1)
Quarter: 2015Q1

REPORT INFORMATION
  Report Type: Spontaneous
  Country: US (occurrence: None)
  Receive Date: 20150318
  Receipt Date: 20150318
  Transmission Date: 20150721
  Serious: Yes (Other)
  Sender: FDA-Public Use
  Company Number: None

PATIENT
  Age: 24 Year
  Sex: Female
  Weight: 58.6 kg

DRUGS (10)
  1. GUAIFENESIN. [Concomitant]
     Active Substance: GUAIFENESIN
  2. SODIUM CHLORIDE 0.9% [Concomitant]
     Active Substance: SODIUM CHLORIDE
  3. MOXIFLOXACIN [Suspect]
     Active Substance: MOXIFLOXACIN
     Indication: BACTERAEMIA
     Dosage: 1 TABLET QD ORAL
     Route: 048
     Dates: start: 20150213, end: 20150214
  4. HEPARIN [Concomitant]
     Active Substance: HEPARIN SODIUM
  5. POTASSIUM CHLORIDE. [Concomitant]
     Active Substance: POTASSIUM CHLORIDE
  6. HYDROXYCHLOROQUINE [Concomitant]
     Active Substance: HYDROXYCHLOROQUINE
  7. CEFTRIAXONE. [Concomitant]
     Active Substance: CEFTRIAXONE
  8. MOXIFLOXACIN [Suspect]
     Active Substance: MOXIFLOXACIN
     Indication: STREPTOCOCCUS TEST POSITIVE
     Dosage: 1 TABLET QD ORAL
     Route: 048
     Dates: start: 20150213, end: 20150214
  9. NYSTATIN. [Concomitant]
     Active Substance: NYSTATIN
  10. PREDNISONE. [Concomitant]
     Active Substance: PREDNISONE

REACTIONS (1)
  - Hallucination, visual [None]

NARRATIVE: CASE EVENT DATE: 20150214
